FAERS Safety Report 4348293-3 (Version None)
Quarter: 2004Q2

REPORT INFORMATION
  Report Type: 
  Country: None (occurrence: None)
  Receive Date: 20040422
  Receipt Date: 20040412
  Transmission Date: 20050107
  Serious: Yes (Hospitalization, Other)
  Sender: FDA-Public Use
  Company Number: 2004-BP-01962RO

PATIENT
  Age: 46 Year
  Sex: Male

DRUGS (2)
  1. LEUCOVORIN CALCIUM [Suspect]
     Indication: RECTAL CANCER
     Dosage: 75 MG, PO
     Route: 048
     Dates: start: 20030528, end: 20031015
  2. UPT (TEGAFUR URACIL) [Suspect]
     Indication: RECTAL CANCER
     Dosage: 5 CAPSULES PER DAY, PO
     Route: 048
     Dates: start: 20030528, end: 20031015

REACTIONS (9)
  - ABDOMINAL PAIN UPPER [None]
  - ALANINE AMINOTRANSFERASE INCREASED [None]
  - ASPARTATE AMINOTRANSFERASE INCREASED [None]
  - BLOOD BILIRUBIN INCREASED [None]
  - DIARRHOEA [None]
  - LIVER DISORDER [None]
  - MALAISE [None]
  - PRURITUS [None]
  - VOMITING [None]
